FAERS Safety Report 19056876 (Version 5)
Quarter: 2021Q3

REPORT INFORMATION
  Report Type: Report from Study
  Country: JP (occurrence: JP)
  Receive Date: 20210325
  Receipt Date: 20210922
  Transmission Date: 20211014
  Serious: Yes (Death, Other)
  Sender: FDA-Public Use
  Company Number: JP-PFIZER INC-2021320731

PATIENT
  Age: 61 Year
  Sex: Female
  Weight: 50.3 kg

DRUGS (7)
  1. CETUXIMAB(GENETICAL RECOMBINATION) [Concomitant]
     Active Substance: CETUXIMAB
     Dosage: 340 MG/M2
     Route: 065
     Dates: start: 20210413, end: 20210427
  2. MEKTOVI [Suspect]
     Active Substance: BINIMETINIB
     Dosage: 30 MG, Q12H (60 MG/DAY)
     Route: 048
     Dates: start: 20210330, end: 20210331
  3. MEKTOVI [Suspect]
     Active Substance: BINIMETINIB
     Indication: COLON CANCER
     Dosage: 45 MG, Q12H (90 MG/DAY)
     Route: 048
     Dates: start: 20210316, end: 20210317
  4. CETUXIMAB(GENETICAL RECOMBINATION) [Concomitant]
     Active Substance: CETUXIMAB
     Indication: COLON CANCER
     Dosage: 400 MG/M2
     Route: 065
     Dates: start: 20210316, end: 20210316
  5. BRAFTOVI [Suspect]
     Active Substance: ENCORAFENIB
     Indication: COLON CANCER
     Dosage: 300 MG, 1X/DAY
     Route: 048
     Dates: start: 20210316, end: 20210317
  6. CETUXIMAB(GENETICAL RECOMBINATION) [Concomitant]
     Active Substance: CETUXIMAB
     Dosage: 250 MG/M2
     Route: 065
     Dates: start: 20210330, end: 20210330
  7. BRAFTOVI [Suspect]
     Active Substance: ENCORAFENIB
     Dosage: 225 MG, 1X/DAY
     Route: 048
     Dates: start: 20210330, end: 20210331

REACTIONS (2)
  - Serous retinal detachment [Recovered/Resolved]
  - Serous retinal detachment [Recovered/Resolved]

NARRATIVE: CASE EVENT DATE: 20210317
